FAERS Safety Report 7712335-5 (Version None)
Quarter: 2011Q3

REPORT INFORMATION
  Report Type: 
  Country: None (occurrence: None)
  Receive Date: 20110826
  Receipt Date: 20110817
  Transmission Date: 20111222
  Serious: No
  Sender: FDA-Public Use
  Company Number: BR-ROCHE-746123

PATIENT
  Sex: Female

DRUGS (3)
  1. ISOTRETINOIN [Suspect]
     Indication: ACNE
     Dosage: 20 MG EVERY OTHER DAY FOR THREE MONTHS IN A YEAR
     Route: 064
     Dates: start: 20070101
  2. ISOTRETINOIN [Suspect]
     Dosage: 20 MG EVERY OTHER DAY FOR THREE MONTHS IN A YEAR
     Route: 064
     Dates: start: 20100701, end: 20100901
  3. YASMIN [Suspect]
     Indication: CONTRACEPTION
     Route: 064

REACTIONS (1)
  - NORMAL NEWBORN [None]
